FAERS Safety Report 17767284 (Version 5)
Quarter: 2022Q2

REPORT INFORMATION
  Report Type: Spontaneous
  Country: AR (occurrence: AR)
  Receive Date: 20200511
  Receipt Date: 20220627
  Transmission Date: 20220721
  Serious: Yes (Other)
  Sender: FDA-Public Use
  Company Number: AR-GLAXOSMITHKLINE-AR2020AMR077063

PATIENT

DRUGS (1)
  1. NUCALA [Suspect]
     Active Substance: MEPOLIZUMAB
     Indication: Asthma
     Dosage: 100 MG
     Route: 042
     Dates: start: 20200401

REACTIONS (25)
  - Suicide threat [Unknown]
  - Suicide attempt [Unknown]
  - Cataract [Unknown]
  - Coeliac disease [Unknown]
  - Syncope [Unknown]
  - Pain [Unknown]
  - Hypoaesthesia [Unknown]
  - Blood pressure increased [Unknown]
  - Fatigue [Unknown]
  - Bone disorder [Unknown]
  - Nasopharyngitis [Unknown]
  - Secretion discharge [Unknown]
  - Dry eye [Unknown]
  - Sleep disorder [Unknown]
  - Myalgia [Unknown]
  - Movement disorder [Unknown]
  - Product dose omission issue [Unknown]
  - Cough [Unknown]
  - Bone pain [Unknown]
  - Anosmia [Unknown]
  - Intervertebral disc degeneration [Unknown]
  - Back pain [Unknown]
  - Pain in extremity [Unknown]
  - Arthralgia [Unknown]
  - Spinal disorder [Unknown]
